FAERS Safety Report 9871157 (Version 1)
Quarter: 2014Q1

REPORT INFORMATION
  Report Type: Spontaneous
  Country: US (occurrence: US)
  Receive Date: 20140205
  Receipt Date: 20140205
  Transmission Date: 20141002
  Serious: No
  Sender: FDA-Public Use
  Company Number: US-GILEAD-2014-0093689

PATIENT
  Sex: Male

DRUGS (2)
  1. RANEXA [Suspect]
     Indication: ANGINA PECTORIS
     Dosage: 1000 MG, UNK
     Route: 048
  2. RANEXA [Suspect]
     Dosage: 500 MG, UNK
     Route: 048

REACTIONS (2)
  - Feeling jittery [Unknown]
  - Lethargy [Unknown]
